FAERS Safety Report 25712265 (Version 1)
Quarter: 2025Q3

REPORT INFORMATION
  Report Type: Spontaneous
  Country: EU (occurrence: EU)
  Receive Date: 20250821
  Receipt Date: 20250821
  Transmission Date: 20251021
  Serious: Yes (Other)
  Sender: ELI LILLY AND COMPANY
  Company Number: EU-SANDOZ-SDZ2025NL057343

PATIENT
  Sex: Female

DRUGS (1)
  1. FLUOXETINE HYDROCHLORIDE [Suspect]
     Active Substance: FLUOXETINE HYDROCHLORIDE
     Indication: Antidepressant therapy
     Route: 065
     Dates: start: 202503

REACTIONS (12)
  - Loss of consciousness [Unknown]
  - Suicidal ideation [Unknown]
  - Behaviour disorder [Unknown]
  - Depression [Recovered/Resolved]
  - Injury [Unknown]
  - Speech disorder [Unknown]
  - Illusion [Unknown]
  - Emotional disorder [Unknown]
  - Disturbance in attention [Recovered/Resolved]
  - Memory impairment [Unknown]
  - Rash pruritic [Recovered/Resolved]
  - Drug ineffective [Unknown]

NARRATIVE: CASE EVENT DATE: 20250101
